FAERS Safety Report 23915527 (Version 1)
Quarter: 2024Q2

REPORT INFORMATION
  Report Type: Spontaneous
  Country: US (occurrence: US)
  Receive Date: 20240529
  Receipt Date: 20240529
  Transmission Date: 20240716
  Serious: Yes (Other)
  Sender: FDA-Public Use
  Company Number: US-PFM-2024-03122

PATIENT
  Sex: Female

DRUGS (6)
  1. PROPRANOLOL [Suspect]
     Active Substance: PROPRANOLOL HYDROCHLORIDE
     Indication: Graves^ disease
     Dosage: UNK
     Route: 065
  2. PROPRANOLOL [Suspect]
     Active Substance: PROPRANOLOL HYDROCHLORIDE
     Indication: Off label use
  3. PEMBROLIZUMAB [Suspect]
     Active Substance: PEMBROLIZUMAB
     Indication: Graves^ disease
     Dosage: UNK, FOR MAINTENANCE AND RECEIVED A TOTAL OF 30 CYCLES
     Route: 065
  4. LEVOTHYROXINE [Suspect]
     Active Substance: LEVOTHYROXINE\LEVOTHYROXINE SODIUM
     Indication: Graves^ disease
     Dosage: 50 UG DAILY
     Route: 065
  5. LEVOTHYROXINE [Suspect]
     Active Substance: LEVOTHYROXINE\LEVOTHYROXINE SODIUM
     Dosage: 112 UG DAILY
     Route: 065
  6. METHIMAZOLE [Suspect]
     Active Substance: METHIMAZOLE
     Indication: Thyroid hormones increased
     Dosage: UNK
     Route: 065

REACTIONS (5)
  - Endocrine ophthalmopathy [Unknown]
  - Goitre [Unknown]
  - Thyroid dermatopathy [Unknown]
  - Drug ineffective for unapproved indication [Unknown]
  - Off label use [Unknown]
